FAERS Safety Report 24760994 (Version 2)
Quarter: 2025Q1

REPORT INFORMATION
  Report Type: Spontaneous
  Country: US (occurrence: US)
  Receive Date: 20241220
  Receipt Date: 20250122
  Transmission Date: 20250408
  Serious: No
  Sender: Kenvue
  Company Number: US-KENVUE-20241205179

PATIENT
  Sex: Female

DRUGS (10)
  1. TYLENOL [Suspect]
     Active Substance: ACETAMINOPHEN
     Indication: Migraine
     Route: 048
  2. NURTEC ODT [Concomitant]
     Active Substance: RIMEGEPANT SULFATE
     Indication: Migraine
     Dosage: 75 MILLIGRAM, EVERY OTHER DAY
     Route: 048
     Dates: start: 202208, end: 20240118
  3. NURTEC ODT [Concomitant]
     Active Substance: RIMEGEPANT SULFATE
     Route: 048
  4. BOTOX [Concomitant]
     Active Substance: ONABOTULINUMTOXINA
     Indication: Migraine
     Route: 030
     Dates: start: 20231016
  5. AMITRIPTYLINE [Concomitant]
     Active Substance: AMITRIPTYLINE
     Indication: Migraine
     Dosage: 40-50,  ONCE A DAY
     Route: 048
     Dates: start: 20231115
  6. PROPRANOLOL HYDROCHLORIDE [Concomitant]
     Active Substance: PROPRANOLOL HYDROCHLORIDE
     Indication: Migraine
     Dosage: 20-30 MG, TWICE A DAY
     Route: 048
     Dates: start: 20240118
  7. LIDOCAINE [Concomitant]
     Active Substance: LIDOCAINE
     Indication: Migraine
     Route: 030
     Dates: start: 20240118
  8. FROVATRIPTAN [Concomitant]
     Active Substance: FROVATRIPTAN
     Indication: Migraine
     Route: 048
  9. ADVIL [Concomitant]
     Active Substance: IBUPROFEN
     Indication: Migraine
     Route: 048
  10. MAXALT [Concomitant]
     Active Substance: RIZATRIPTAN BENZOATE
     Indication: Migraine
     Route: 048

REACTIONS (1)
  - Exposure during pregnancy [Unknown]
